FAERS Safety Report 12359362 (Version 2)
Quarter: 2020Q3

REPORT INFORMATION
  Report Type: Report from Study
  Country: KR (occurrence: KR)
  Receive Date: 20160512
  Receipt Date: 20160519
  Transmission Date: 20201104
  Serious: Yes (Hospitalization)
  Sender: FDA-Public Use
  Company Number: KR-JNJFOC-20160504894

PATIENT
  Age: 74 Year
  Sex: Male
  Weight: 44.4 kg

DRUGS (5)
  1. DARATUMUMAB [Suspect]
     Active Substance: DARATUMUMAB
     Indication: PLASMA CELL MYELOMA
     Dosage: ACCORDING TO PROTOCOL
     Route: 042
     Dates: start: 20160229
  2. DARATUMUMAB [Suspect]
     Active Substance: DARATUMUMAB
     Route: 042
  3. VELCADE [Suspect]
     Active Substance: BORTEZOMIB
     Indication: PLASMA CELL MYELOMA
     Dosage: ACCORDING TO PROTOCOL
     Route: 058
     Dates: start: 20160229
  4. PREDNISONE. [Suspect]
     Active Substance: PREDNISONE
     Indication: PLASMA CELL MYELOMA
     Dosage: ACCORDING TO PROTOCOL
     Route: 048
     Dates: start: 20160301
  5. MELPHALAN. [Suspect]
     Active Substance: MELPHALAN
     Indication: PLASMA CELL MYELOMA
     Dosage: ACCORDING TO PROTOCOL
     Route: 048
     Dates: start: 20160229

REACTIONS (1)
  - Pneumonia [Unknown]
